FAERS Safety Report 8089827-5 (Version None)
Quarter: 2012Q1

REPORT INFORMATION
  Report Type: 
  Country: None (occurrence: None)
  Receive Date: 20120128
  Receipt Date: 20110620
  Transmission Date: 20120608
  Serious: No
  Sender: FDA-Public Use
  Company Number: US-ABBOTT-11P-163-0733743-00

PATIENT
  Age: 73 Year
  Sex: Female

DRUGS (14)
  1. LIDODERM [Concomitant]
     Indication: PAIN
     Dosage: 5% PATCH
  2. CENTRUM SILVER VITAMIN [Concomitant]
     Indication: PRODUCT USED FOR UNKNOWN INDICATION
  3. VITAMIN D [Concomitant]
     Indication: PRODUCT USED FOR UNKNOWN INDICATION
     Dosage: PER WEEK
  4. CALCIUM [Concomitant]
     Indication: PRODUCT USED FOR UNKNOWN INDICATION
  5. VITAMIN B-12 [Concomitant]
     Indication: PRODUCT USED FOR UNKNOWN INDICATION
     Route: 060
  6. FOLIC ACID [Concomitant]
     Indication: PRODUCT USED FOR UNKNOWN INDICATION
  7. NORVASC [Concomitant]
     Indication: HYPERTENSION
  8. LIPITOR [Concomitant]
     Indication: BLOOD CHOLESTEROL INCREASED
  9. FISH OIL [Concomitant]
     Indication: PRODUCT USED FOR UNKNOWN INDICATION
  10. VITAMIN E [Concomitant]
     Indication: PRODUCT USED FOR UNKNOWN INDICATION
  11. HUMIRA [Suspect]
     Indication: RHEUMATOID ARTHRITIS
     Dates: start: 20110201
  12. PLAVIX [Concomitant]
     Indication: CEREBROVASCULAR ACCIDENT
     Dates: start: 19990101
  13. BYSTOLIC [Concomitant]
     Indication: HYPERTENSION
  14. FLAXSEED [Concomitant]
     Indication: PRODUCT USED FOR UNKNOWN INDICATION

REACTIONS (5)
  - EYE HAEMORRHAGE [None]
  - LACRIMATION INCREASED [None]
  - RASH GENERALISED [None]
  - CONTUSION [None]
  - OCULAR DISCOMFORT [None]
